FAERS Safety Report 5270213-8 (Version None)
Quarter: 2007Q1

REPORT INFORMATION
  Report Type: 
  Country: None (occurrence: None)
  Receive Date: 20070320
  Receipt Date: 20070308
  Transmission Date: 20070707
  Serious: Yes (Death, Other)
  Sender: FDA-Public Use
  Company Number: DE-SHR-DE-2007-008842

PATIENT
  Age: 50 Year
  Sex: Female

DRUGS (2)
  1. ULTRAVIST 300 [Suspect]
     Indication: COMPUTERISED TOMOGRAM ABDOMEN
     Dosage: 125 ML, 1 DOSE
     Route: 042
     Dates: start: 20070307, end: 20070307
  2. BETA BLOCKING AGENTS [Concomitant]

REACTIONS (3)
  - PULMONARY EMBOLISM [None]
  - RIGHT VENTRICULAR FAILURE [None]
  - VENOUS THROMBOSIS LIMB [None]
